FAERS Safety Report 19901537 (Version 1)
Quarter: 2021Q3

REPORT INFORMATION
  Report Type: Report from Study
  Country: US (occurrence: US)
  Receive Date: 20210929
  Receipt Date: 20210929
  Transmission Date: 20211014
  Serious: Yes (Hospitalization, Other)
  Sender: FDA-Public Use
  Company Number: US-GILEAD-2021-0550678

PATIENT
  Sex: Male

DRUGS (1)
  1. BICTEGRAVIR W/EMTRICITABINE/TENOFOVIR ALAFENAMIDE [Suspect]
     Active Substance: BICTEGRAVIR\EMTRICITABINE\TENOFOVIR ALAFENAMIDE
     Indication: HIV INFECTION
     Dosage: 1 DOSAGE FORM, QD 275 MG
     Route: 048

REACTIONS (4)
  - Limb traumatic amputation [Not Recovered/Not Resolved]
  - Accident [Recovered/Resolved with Sequelae]
  - Unevaluable event [Not Recovered/Not Resolved]
  - Impaired driving ability [Not Recovered/Not Resolved]
